FAERS Safety Report 5737039-X (Version None)
Quarter: 2008Q2

REPORT INFORMATION
  Report Type: 
  Country: None (occurrence: None)
  Receive Date: 20080512
  Receipt Date: 20080512
  Transmission Date: 20081010
  Serious: Yes (Other)
  Sender: FDA-Public Use
  Company Number: None

PATIENT
  Age: 57 Year
  Sex: Female

DRUGS (3)
  1. BACTRIM DS [Suspect]
     Indication: PHARYNGEAL ERYTHEMA
     Dosage: DOUBLE STRENGTH - 800/160 2 TIMES PER DAY - 10 DAYS
     Dates: start: 20071201, end: 20071210
  2. BACTRIM DS [Suspect]
     Indication: SINUSITIS
     Dosage: DOUBLE STRENGTH - 800/160 2 TIMES PER DAY - 10 DAYS
     Dates: start: 20071201, end: 20071210
  3. BACTRIM DS [Suspect]
     Indication: THROAT IRRITATION
     Dosage: DOUBLE STRENGTH - 800/160 2 TIMES PER DAY - 10 DAYS
     Dates: start: 20071201, end: 20071210

REACTIONS (7)
  - ADVERSE DRUG REACTION [None]
  - FATIGUE [None]
  - PAIN IN EXTREMITY [None]
  - PLATELET COUNT DECREASED [None]
  - RASH MACULO-PAPULAR [None]
  - SKIN DISCOLOURATION [None]
  - SKIN DISORDER [None]
